FAERS Safety Report 6036753-9 (Version None)
Quarter: 2009Q1

REPORT INFORMATION
  Report Type: 
  Country: None (occurrence: None)
  Receive Date: 20090114
  Receipt Date: 20080229
  Transmission Date: 20090719
  Serious: No
  Sender: FDA-Public Use
  Company Number: US-BRISTOL-MYERS SQUIBB COMPANY-13718465

PATIENT
  Age: 71 Year
  Sex: Male
  Weight: 102 kg

DRUGS (9)
  1. CISPLATIN [Suspect]
     Indication: HEAD AND NECK CANCER
     Dates: start: 20010101
  2. PACLITAXEL [Suspect]
     Indication: HEAD AND NECK CANCER
  3. 5-FU [Suspect]
     Indication: HEAD AND NECK CANCER
  4. LIPITOR [Concomitant]
  5. PROPRANOLOL [Concomitant]
  6. LEVOTHYROXINE SODIUM [Concomitant]
  7. INDERAL [Concomitant]
  8. VYTORIN [Concomitant]
  9. SYNTHROID [Concomitant]

REACTIONS (7)
  - AMNESIA [None]
  - BALANCE DISORDER [None]
  - HYPOACUSIS [None]
  - LACRIMATION INCREASED [None]
  - MOUTH ULCERATION [None]
  - MUSCULAR WEAKNESS [None]
  - NEUROPATHY PERIPHERAL [None]
